FAERS Safety Report 13441544 (Version 2)
Quarter: 2017Q2

REPORT INFORMATION
  Report Type: Spontaneous
  Country: GB (occurrence: GB)
  Receive Date: 20170413
  Receipt Date: 20170629
  Transmission Date: 20170830
  Serious: Yes (Death, Hospitalization)
  Sender: FDA-Public Use
  Company Number: GB-WEST-WARD PHARMACEUTICALS CORP.-GB-H14001-17-01068

PATIENT
  Age: 11 Month
  Sex: Female
  Weight: 9.2 kg

DRUGS (2)
  1. PHENYTOIN HIKMA [Suspect]
     Active Substance: PHENYTOIN
     Indication: SEIZURE
     Route: 041
     Dates: start: 20160616, end: 20160616
  2. CEFTRIAXONE. [Concomitant]
     Active Substance: CEFTRIAXONE
     Indication: PRODUCT USED FOR UNKNOWN INDICATION
     Route: 041
     Dates: start: 20160616

REACTIONS (8)
  - Cardiac arrest [Fatal]
  - Cough [Not Recovered/Not Resolved]
  - Product preparation error [Not Recovered/Not Resolved]
  - Vomiting [Not Recovered/Not Resolved]
  - Irritability [Not Recovered/Not Resolved]
  - Overdose [Not Recovered/Not Resolved]
  - Somnolence [Not Recovered/Not Resolved]
  - Generalised tonic-clonic seizure [Not Recovered/Not Resolved]

NARRATIVE: CASE EVENT DATE: 20160616
